FAERS Safety Report 10650792 (Version 1)
Quarter: 2014Q4

REPORT INFORMATION
  Report Type: Spontaneous
  Country: US (occurrence: US)
  Receive Date: 20141215
  Receipt Date: 20141215
  Transmission Date: 20150529
  Serious: Yes (Other)
  Sender: FDA-Public Use
  Company Number: PHHY2014US158348

PATIENT
  Age: 56 Year
  Sex: Female

DRUGS (1)
  1. METHOTREXATE [Suspect]
     Active Substance: METHOTREXATE
     Indication: SERONEGATIVE ARTHRITIS
     Route: 065

REACTIONS (7)
  - Oesophagitis [Unknown]
  - Odynophagia [Recovered/Resolved]
  - Pancytopenia [Recovered/Resolved]
  - Folate deficiency [Unknown]
  - Mouth ulceration [Recovered/Resolved]
  - Skin ulcer [Recovered/Resolved]
  - Toxicity to various agents [Unknown]
